FAERS Safety Report 9853527 (Version 2)
Quarter: 2014Q1

REPORT INFORMATION
  Report Type: Spontaneous
  Country: AU (occurrence: AU)
  Receive Date: 20140129
  Receipt Date: 20140313
  Transmission Date: 20141002
  Serious: Yes (Death)
  Sender: FDA-Public Use
  Company Number: AU-MERCK-1401AUS011906

PATIENT
  Age: 54 Year
  Sex: Male

DRUGS (1)
  1. ZOLINZA [Suspect]
     Indication: PLASMA CELL MYELOMA
     Dosage: UNK
     Route: 048
     Dates: start: 2013

REACTIONS (1)
  - Disease progression [Fatal]
